FAERS Safety Report 5937736-7 (Version None)
Quarter: 2008Q4

REPORT INFORMATION
  Report Type: 
  Country: None (occurrence: None)
  Receive Date: 20081031
  Receipt Date: 20080326
  Transmission Date: 20090506
  Serious: No
  Sender: FDA-Public Use
  Company Number: US-BAYER-200811330BCC

PATIENT
  Age: 70 Year
  Sex: Female
  Weight: 82 kg

DRUGS (4)
  1. ALEVE [Suspect]
     Indication: ARTHRALGIA
     Dosage: TOTAL DAILY DOSE: 440 MG  UNIT DOSE: 220 MG
     Route: 048
  2. ONE-A-DAY WOMEN'S 50+ ADVANTAGE [Suspect]
     Indication: DRUG USE FOR UNKNOWN INDICATION
     Route: 048
  3. SYNTHROID [Concomitant]
  4. ENALAPRIL MALEATE [Concomitant]

REACTIONS (1)
  - CHROMATURIA [None]
